FAERS Safety Report 9536151 (Version 1)
Quarter: 2013Q3

REPORT INFORMATION
  Report Type: Spontaneous
  Country: US (occurrence: None)
  Receive Date: 20130917
  Receipt Date: 20130917
  Transmission Date: 20140515
  Serious: Yes (Disabling, Other)
  Sender: FDA-Public Use
  Company Number: None

PATIENT
  Age: 50 Year
  Sex: Female
  Weight: 73.48 kg

DRUGS (15)
  1. TRAZODONE (TRAZODONE) [Suspect]
     Indication: BIPOLAR DISORDER
     Dates: start: 20130822, end: 20130828
  2. PROAIR [Concomitant]
  3. FLOVENT [Concomitant]
  4. CYMBATTA [Concomitant]
  5. LEVOTHYROXINE SODIUM [Concomitant]
  6. METOCLOPRAMIDE [Concomitant]
  7. OMEPRZOLE [Concomitant]
  8. LOSARTAN POTASSIUM [Concomitant]
  9. BABY ASPRIN [Concomitant]
  10. VIT D [Concomitant]
  11. GABAPENTIN [Concomitant]
  12. MEFORMIN HCL [Concomitant]
  13. SIMVASTATIN [Concomitant]
  14. MONTELUKAST SODIUM [Concomitant]
  15. OMEPROZOLE [Concomitant]

REACTIONS (2)
  - Asthma [None]
  - Condition aggravated [None]
